FAERS Safety Report 17229499 (Version 1)
Quarter: 2020Q1

REPORT INFORMATION
  Report Type: Spontaneous
  Country: US (occurrence: US)
  Receive Date: 20200102
  Receipt Date: 20200102
  Transmission Date: 20200409
  Serious: Yes (Disabling)
  Sender: FDA-Public Use
  Company Number: None

PATIENT
  Age: 35 Year
  Sex: Female
  Weight: 40.82 kg

DRUGS (12)
  1. ICL LENSE [DEVICE] [Suspect]
     Active Substance: DEVICE
     Indication: VISUAL IMPAIRMENT
  2. BETAMETHASONE. [Concomitant]
     Active Substance: BETAMETHASONE
     Dosage: DIP AUG CREAM 50 GM 2X DAY
  3. AMITRIPRYLINE 25MG [Concomitant]
  4. PILOCARPINE. [Suspect]
     Active Substance: PILOCARPINE
  5. TIZANDINE 4MG [Concomitant]
  6. NAPROXEN. [Concomitant]
     Active Substance: NAPROXEN
  7. AMICAR [Concomitant]
     Active Substance: AMINOCAPROIC ACID
     Dosage: SOL 4TBS EVERY 6HRS AS NEEDED FOR BLEEDS
  8. MIRENA [Concomitant]
     Active Substance: LEVONORGESTREL
  9. PILOCARPINE 1% [Concomitant]
     Active Substance: PILOCARPINE
     Dosage: OPHTH SOLN 15ML 1 DROP IN RIGHT EYE AT NIGHT WHEN DRIVING
  10. CAMBIA 50MG POWDER PACKET [Concomitant]
  11. STIMATE [Concomitant]
     Active Substance: DESMOPRESSIN ACETATE
     Dosage: 1.5MG 1 SPRAY BOTH NOSTRILS AS NEEDE FOR BLEEDS?
  12. TOPIRAMATE 50MG [Concomitant]
     Active Substance: TOPIRAMATE
     Dosage: 1 TAB TWICE DAILY

REACTIONS (6)
  - Social problem [None]
  - Dry eye [None]
  - Headache [None]
  - Migraine [None]
  - Eye pain [None]
  - Pain [None]
